FAERS Safety Report 7522304-6 (Version None)
Quarter: 2011Q2

REPORT INFORMATION
  Report Type: 
  Country: None (occurrence: None)
  Receive Date: 20110603
  Receipt Date: 20110520
  Transmission Date: 20111010
  Serious: Yes (Hospitalization, Other)
  Sender: FDA-Public Use
  Company Number: PHHY2011US37679

PATIENT
  Sex: Female

DRUGS (10)
  1. ACE INHIBITOR NOS [Suspect]
     Dosage: UNK
  2. SYNTHROID [Concomitant]
     Dosage: 50 UG, UNK
  3. AMBIEN [Concomitant]
     Dosage: 6.25 MG, AT NIGHT
  4. PREMARIN [Concomitant]
     Dosage: 0.0625MG
  5. ZYRTEC [Concomitant]
     Dosage: 10 MG, UNK
  6. NEXIUM [Suspect]
     Dosage: 40 MG, QD
     Dates: start: 20110428, end: 20110502
  7. UNKNOWN ECE MEDICATION [Suspect]
     Dosage: 5/160MG, QD
     Dates: end: 20110427
  8. MAXZIDE [Concomitant]
     Dosage: 37.5/25 BM9
  9. EXFORGE [Suspect]
     Dosage: UNK
     Route: 048
  10. DIOVAN [Suspect]
     Dosage: 160 MG, QD, IN THE MORNING
     Dates: start: 20110428

REACTIONS (12)
  - FEELING ABNORMAL [None]
  - GASTROENTERITIS VIRAL [None]
  - INSOMNIA [None]
  - DYSPNOEA [None]
  - ABDOMINAL PAIN UPPER [None]
  - SWELLING [None]
  - BLOOD PRESSURE INCREASED [None]
  - CHEST PAIN [None]
  - GAIT DISTURBANCE [None]
  - ABDOMINAL TENDERNESS [None]
  - HYPOTENSION [None]
  - DRUG HYPERSENSITIVITY [None]
